FAERS Safety Report 7313981-3 (Version None)
Quarter: 2011Q1

REPORT INFORMATION
  Report Type: 
  Country: None (occurrence: None)
  Receive Date: 20110225
  Receipt Date: 20110214
  Transmission Date: 20110831
  Serious: Yes (Other)
  Sender: FDA-Public Use
  Company Number: PHHY2011US05557

PATIENT
  Age: 31 Year
  Sex: Male

DRUGS (9)
  1. DAYQUIL [Concomitant]
     Indication: INFLUENZA LIKE ILLNESS
     Dosage: UNK
     Dates: start: 20101101
  2. RISPERDONE [Concomitant]
     Dosage: 6 MG, UNK
  3. TRILEPTAL [Suspect]
     Dosage: 750 MG, BID
  4. BUPROPION [Concomitant]
     Dosage: 75 MG, BID
  5. ZALEPLON [Concomitant]
     Dosage: 10 MG, UNK
  6. OXCARBAZEPINE [Suspect]
     Indication: BIPOLAR I DISORDER
  7. TRILEPTAL [Suspect]
     Indication: BIPOLAR I DISORDER
     Dosage: 600 MG, BID
  8. NYQUIL [Concomitant]
     Indication: INFLUENZA LIKE ILLNESS
     Dosage: UNK
     Dates: start: 20101101
  9. CLONAZEPAM [Concomitant]
     Dosage: 2 MG, BID

REACTIONS (3)
  - HYPOMANIA [None]
  - BRAIN OEDEMA [None]
  - CHEST DISCOMFORT [None]
